FAERS Safety Report 18463860 (Version 1)
Quarter: 2020Q4

REPORT INFORMATION
  Report Type: Report from Study
  Country: CA (occurrence: CA)
  Receive Date: 20201104
  Receipt Date: 20201104
  Transmission Date: 20210114
  Serious: Yes (Other)
  Sender: FDA-Public Use
  Company Number: CA-JNJFOC-20201015900

PATIENT
  Age: 37 Year
  Sex: Female
  Weight: 116.9 kg

DRUGS (2)
  1. STELARA [Suspect]
     Active Substance: USTEKINUMAB
     Indication: CROHN^S DISEASE
     Route: 058
     Dates: start: 20191003
  2. STELARA [Suspect]
     Active Substance: USTEKINUMAB
     Route: 058

REACTIONS (5)
  - Erythema nodosum [Unknown]
  - Product use issue [Unknown]
  - Bronchitis [Unknown]
  - Off label use [Unknown]
  - Crohn^s disease [Unknown]
